FAERS Safety Report 23835703 (Version 2)
Quarter: 2024Q2

REPORT INFORMATION
  Report Type: Spontaneous
  Country: FR (occurrence: FR)
  Receive Date: 20240509
  Receipt Date: 20240526
  Transmission Date: 20240715
  Serious: Yes (Death, Other)
  Sender: FDA-Public Use
  Company Number: FR-DECIPHERA PHARMACEUTICALS LLC-2024FR000053

PATIENT
  Sex: Male
  Weight: 60 kg

DRUGS (6)
  1. QINLOCK [Suspect]
     Active Substance: RIPRETINIB
     Indication: Gastrointestinal stromal tumour
     Dosage: 150 MILLIGRAM, QD
     Route: 048
     Dates: start: 20230530, end: 20230913
  2. KARDEGIC [Concomitant]
     Active Substance: ASPIRIN DL-LYSINE
     Indication: Acute coronary syndrome
     Dosage: UNK
     Dates: start: 202209
  3. BISOPROLOL FUMARATE\PERINDOPRIL ARGININE [Concomitant]
     Active Substance: BISOPROLOL FUMARATE\PERINDOPRIL ARGININE
     Indication: Acute coronary syndrome
     Dosage: UNK
     Dates: start: 202209
  4. ATORVASTATIN [Concomitant]
     Active Substance: ATORVASTATIN
     Indication: Acute coronary syndrome
     Dosage: UNK
     Dates: start: 202209
  5. ALFUZOSIN [Concomitant]
     Active Substance: ALFUZOSIN
     Indication: Benign prostatic hyperplasia
     Dosage: UNK
     Dates: start: 2020
  6. MORPHINE SULFATE [Concomitant]
     Active Substance: MORPHINE SULFATE
     Indication: Tumour pain
     Dosage: UNK
     Dates: start: 202211

REACTIONS (2)
  - Metastases to liver [Fatal]
  - Malignant neoplasm progression [Fatal]
